FAERS Safety Report 18579959 (Version 5)
Quarter: 2022Q3

REPORT INFORMATION
  Report Type: Report from Study
  Country: FR (occurrence: FR)
  Receive Date: 20201204
  Receipt Date: 20220920
  Transmission Date: 20221027
  Serious: Yes (Other)
  Sender: FDA-Public Use
  Company Number: FR-PFIZER INC-2020474551

PATIENT
  Age: 67 Year
  Sex: Male
  Weight: 70 kg

DRUGS (3)
  1. XELJANZ [Suspect]
     Active Substance: TOFACITINIB CITRATE
     Indication: Rheumatoid arthritis
     Dosage: 5 MG, 2X/DAY
     Dates: start: 20190901, end: 20200925
  2. METHOTREXATE SODIUM [Suspect]
     Active Substance: METHOTREXATE SODIUM
     Indication: Rheumatoid arthritis
     Dosage: 15 MG, WEEKLY
     Dates: start: 20050101, end: 20200925
  3. FLURBIPROFEN [Concomitant]
     Active Substance: FLURBIPROFEN
     Indication: Pain
     Dosage: UNK
     Route: 048
     Dates: start: 20150101

REACTIONS (1)
  - Monoclonal B-cell lymphocytosis [Unknown]

NARRATIVE: CASE EVENT DATE: 20200801
